FAERS Safety Report 6556228-8 (Version None)
Quarter: 2010Q1

REPORT INFORMATION
  Report Type: 
  Country: None (occurrence: None)
  Receive Date: 20100128
  Receipt Date: 20090730
  Transmission Date: 20100710
  Serious: No
  Sender: FDA-Public Use
  Company Number: US-TEVA-204070USA

PATIENT
  Sex: Female

DRUGS (4)
  1. COPAXONE [Suspect]
     Indication: MULTIPLE SCLEROSIS
     Route: 058
     Dates: start: 20090615
  2. ALPRAZOLAM [Concomitant]
  3. CARBAMAZEPINE [Concomitant]
  4. MIDRID                             /00450801/ [Concomitant]

REACTIONS (1)
  - DYSGEUSIA [None]
